FAERS Safety Report 8968077 (Version 1)
Quarter: 2012Q4

REPORT INFORMATION
  Report Type: 
  Country: US (occurrence: US)
  Receive Date: 20121217
  Receipt Date: 20121217
  Transmission Date: 20130627
  Serious: No
  Sender: FDA-Public Use
  Company Number: US-TEVA-376244USA

PATIENT
  Sex: Female

DRUGS (1)
  1. ACTIQ [Suspect]
     Route: 002

REACTIONS (5)
  - Drug ineffective [Unknown]
  - Pain [Unknown]
  - Oral pain [Unknown]
  - Dizziness [Unknown]
  - Nausea [Unknown]
